FAERS Safety Report 5063527-8 (Version None)
Quarter: 2006Q3

REPORT INFORMATION
  Report Type: 
  Country: None (occurrence: None)
  Receive Date: 20060727
  Receipt Date: 20060720
  Transmission Date: 20061208
  Serious: Yes (Other)
  Sender: FDA-Public Use
  Company Number: US-BRISTOL-MYERS SQUIBB COMPANY-13449657

PATIENT
  Age: 41 Year
  Sex: Female

DRUGS (1)
  1. DEFINITY [Suspect]
     Indication: ULTRASOUND DOPPLER
     Route: 042
     Dates: start: 20060716

REACTIONS (2)
  - EYE SWELLING [None]
  - PRURITUS [None]
